FAERS Safety Report 24364728 (Version 1)
Quarter: 2024Q3

REPORT INFORMATION
  Report Type: Report from Study
  Country: US (occurrence: US)
  Receive Date: 20240926
  Receipt Date: 20240926
  Transmission Date: 20241016
  Serious: Yes (Other)
  Sender: ABBVIE
  Company Number: US-ABBVIE-5933568

PATIENT
  Age: 22 Year
  Sex: Female

DRUGS (1)
  1. QULIPTA [Suspect]
     Active Substance: ATOGEPANT
     Indication: Migraine
     Dosage: END DATE: BETWEEN JUN AND JUL 2024
     Route: 048
     Dates: start: 2024, end: 2024

REACTIONS (6)
  - Septic shock [Unknown]
  - Drug ineffective [Not Recovered/Not Resolved]
  - Wrong technique in product usage process [Unknown]
  - Migraine [Unknown]
  - Bacterial sepsis [Unknown]
  - Plasmapheresis [Unknown]

NARRATIVE: CASE EVENT DATE: 20240101
